FAERS Safety Report 16966321 (Version 1)
Quarter: 2019Q4

REPORT INFORMATION
  Report Type: Spontaneous
  Country: US (occurrence: US)
  Receive Date: 20190910
  Receipt Date: 20190910
  Transmission Date: 20200122
  Serious: No
  Sender: FDA-Public Use
  Company Number: None

PATIENT
  Age: 77 Year
  Sex: Male

DRUGS (1)
  1. BRIMONIDINE/BRINZOLAMIDE [Suspect]
     Active Substance: BRIMONIDINE TARTRATE\BRINZOLAMIDE
     Indication: GLAUCOMA
     Dates: start: 20180819, end: 20190504

REACTIONS (4)
  - Product administration error [None]
  - Ectropion [None]
  - Dermatitis [None]
  - Reaction to preservatives [None]

NARRATIVE: CASE EVENT DATE: 20190504
